FAERS Safety Report 9313620 (Version 1)
Quarter: 2013Q2

REPORT INFORMATION
  Report Type: Report from Study
  Country: JP (occurrence: JP)
  Receive Date: 20130528
  Receipt Date: 20130528
  Transmission Date: 20140414
  Serious: Yes (Other)
  Sender: FDA-Public Use
  Company Number: JP-US-EMD SERONO, INC.-7124118

PATIENT
  Sex: Female
  Weight: 47 kg

DRUGS (2)
  1. GONAL-F [Suspect]
     Indication: OVULATION INDUCTION
     Route: 058
     Dates: start: 20110418, end: 20110418
  2. HCG [Concomitant]
     Indication: OVULATION INDUCTION
     Route: 030
     Dates: start: 20110422, end: 20110422

REACTIONS (1)
  - Abortion missed [Recovered/Resolved]
